APPROVED DRUG PRODUCT: ATROPINE SULFATE
Active Ingredient: ATROPINE SULFATE
Strength: 0.4MG/ML (0.4MG/ML)
Dosage Form/Route: SOLUTION;INTRAVENOUS
Application: A217345 | Product #001 | TE Code: AP
Applicant: HIKMA PHARMACEUTICALS USA INC
Approved: Oct 24, 2025 | RLD: No | RS: No | Type: RX